FAERS Safety Report 5498591-5 (Version None)
Quarter: 2007Q4

REPORT INFORMATION
  Report Type: 
  Country: None (occurrence: None)
  Receive Date: 20071025
  Receipt Date: 20071025
  Transmission Date: 20080405
  Serious: Yes (Hospitalization)
  Sender: FDA-Public Use
  Company Number: None

PATIENT
  Age: 77 Year
  Sex: Male

DRUGS (2)
  1. CARBOPLATIN [Suspect]
     Indication: NEOPLASM
     Dosage: 310MG  ONCE  IV
     Route: 042
     Dates: start: 20071016, end: 20071016
  2. ETOPOSIDE [Suspect]
     Dosage: 150MG  ONCE  IV
     Route: 042
     Dates: start: 20071016, end: 20071016

REACTIONS (2)
  - PYREXIA [None]
  - RASH ERYTHEMATOUS [None]
